FAERS Safety Report 5054021-9 (Version None)
Quarter: 2006Q3

REPORT INFORMATION
  Report Type: 
  Country: None (occurrence: None)
  Receive Date: 20060713
  Receipt Date: 20060705
  Transmission Date: 20061208
  Serious: Yes (Death, Life-Threatening, Disabling, Other)
  Sender: FDA-Public Use
  Company Number: 200612762GDS

PATIENT
  Age: 80 Year
  Sex: Female
  Weight: 50 kg

DRUGS (1)
  1. AVELOX [Suspect]
     Indication: PNEUMONIA
     Dosage: 400 MG, ONCE, INTRAVENOUS
     Route: 042
     Dates: start: 20060627

REACTIONS (6)
  - ARRHYTHMIA [None]
  - ASTHENIA [None]
  - DYSARTHRIA [None]
  - RASH [None]
  - STUPOR [None]
  - VOMITING [None]
